FAERS Safety Report 7318872-X (Version None)
Quarter: 2011Q1

REPORT INFORMATION
  Report Type: 
  Country: None (occurrence: None)
  Receive Date: 20110228
  Receipt Date: 20110218
  Transmission Date: 20110831
  Serious: Yes (Hospitalization, Other)
  Sender: FDA-Public Use
  Company Number: US-AMGEN-USASP2011010172

PATIENT
  Age: 86 Year
  Sex: Female

DRUGS (1)
  1. PROCRIT [Suspect]
     Indication: ANAEMIA
     Dosage: 40000 IU, ONE TIME DOSE
     Route: 058
     Dates: start: 20091201, end: 20091201

REACTIONS (3)
  - ANAEMIA [None]
  - RENAL FAILURE [None]
  - BLOOD CREATININE INCREASED [None]
